FAERS Safety Report 6982309-0 (Version None)
Quarter: 2010Q3

REPORT INFORMATION
  Report Type: 
  Country: None (occurrence: None)
  Receive Date: 20100914
  Receipt Date: 20091218
  Transmission Date: 20110219
  Serious: Yes (Other)
  Sender: FDA-Public Use
  Company Number: US-PFIZER INC-2009313066

PATIENT
  Sex: Female
  Weight: 82.993 kg

DRUGS (14)
  1. LYRICA [Suspect]
     Indication: FIBROMYALGIA
     Dosage: 50 MG, 1X/DAY
     Dates: start: 20091216, end: 20091218
  2. ABILIFY [Concomitant]
     Dosage: UNK
  3. QUETIAPINE FUMARATE [Concomitant]
     Dosage: UNK
  4. LEXAPRO [Concomitant]
     Dosage: UNK
  5. KLONOPIN [Concomitant]
     Dosage: UNK
  6. NASONEX [Concomitant]
     Dosage: UNK
  7. CLARITIN [Concomitant]
     Dosage: UNK
  8. BETHANECHOL [Concomitant]
     Dosage: UNK
  9. MACROBID [Concomitant]
     Dosage: UNK
  10. TAMSULOSIN HYDROCHLORIDE [Concomitant]
     Dosage: UNK
  11. LORTAB [Concomitant]
     Dosage: FREQUENCY: AS NEEDED,
  12. MIRALAX [Concomitant]
     Dosage: UNK
  13. FLEXERIL [Concomitant]
     Dosage: UNK
  14. ALBUTEROL [Concomitant]
     Dosage: UNK

REACTIONS (2)
  - DEPRESSION [None]
  - SUICIDAL IDEATION [None]
